FAERS Safety Report 5976492-3 (Version None)
Quarter: 2008Q4

REPORT INFORMATION
  Report Type: 
  Country: None (occurrence: None)
  Receive Date: 20081126
  Receipt Date: 20081112
  Transmission Date: 20090506
  Serious: Yes (Other)
  Sender: FDA-Public Use
  Company Number: B0547256A

PATIENT
  Age: 46 Year
  Sex: Female

DRUGS (2)
  1. SUMATRIPTAN SUCCINATE [Suspect]
     Indication: MIGRAINE
  2. ESTROGEN (FORMULATION UNKNOWN) (ESTROGEN) [Suspect]
     Indication: ORAL CONTRACEPTION
     Dosage: ORAL
     Route: 048

REACTIONS (2)
  - COLITIS ISCHAEMIC [None]
  - LARGE INTESTINAL ULCER [None]
